FAERS Safety Report 10855002 (Version 1)
Quarter: 2015Q1

REPORT INFORMATION
  Report Type: Spontaneous
  Country: US (occurrence: US)
  Receive Date: 20150223
  Receipt Date: 20150223
  Transmission Date: 20150721
  Serious: No
  Sender: FDA-Public Use
  Company Number: US-SHIRE-US201501442

PATIENT
  Age: 34 Year
  Sex: Female

DRUGS (12)
  1. VYVANSE [Suspect]
     Active Substance: LISDEXAMFETAMINE DIMESYLATE
     Indication: ATTENTION DEFICIT/HYPERACTIVITY DISORDER
     Dosage: 50 MG, 1X/DAY:QD
     Route: 048
  2. ORAL CONTRACEPTIVE NOS [Concomitant]
     Active Substance: UNSPECIFIED INGREDIENT
     Indication: CONTRACEPTION
     Dosage: 1 DF, 1X/DAY:QD (AT BEDTIME)
     Route: 048
  3. S-ADENOSYLMETHIONINE SULFATE P-TOLUENESULFONATE [Concomitant]
     Active Substance: ADEMETIONINE SULFATE TOSILATE
     Indication: SUPPLEMENTATION THERAPY
     Dosage: UNK, UNKNOWN ( IN AM)
     Route: 065
  4. PHENYLALANINE, DL- [Concomitant]
     Active Substance: PHENYLALANINE, DL-
     Indication: SUPPLEMENTATION THERAPY
     Dosage: UNK, UNKNOWN
     Route: 065
  5. CALCIUM [Concomitant]
     Active Substance: CALCIUM
     Indication: SUPPLEMENTATION THERAPY
     Dosage: UNK UNK, 1X/DAY:QD (MORNING)
     Route: 065
  6. MULTIVITAMIN                       /00097801/ [Concomitant]
     Active Substance: VITAMINS
     Indication: SUPPLEMENTATION THERAPY
     Dosage: UNK, 1X/DAY:QD (MORNING)
     Route: 065
  7. MELATONIN [Concomitant]
     Active Substance: MELATONIN
     Indication: INSOMNIA
     Dosage: UNK, UNKNOWN
     Route: 065
  8. THEANINE [Concomitant]
     Indication: ANXIETY
     Dosage: UNK, UNKNOWN ( AT BEDTIME)
     Route: 065
  9. VITAMIN K [Concomitant]
     Active Substance: PHYTONADIONE
     Indication: SUPPLEMENTATION THERAPY
     Dosage: UNK, UNKNOWN
     Route: 065
  10. NIACIN. [Concomitant]
     Active Substance: NIACIN
     Indication: SUPPLEMENTATION THERAPY
     Dosage: UNK, 1X/DAY:QD (AT BEDTIME)
     Route: 065
  11. VITAMIN B-6 [Concomitant]
     Active Substance: PYRIDOXINE
     Indication: SUPPLEMENTATION THERAPY
     Dosage: UNK, UNKNOWN
     Route: 065
  12. MAGNESIUM [Concomitant]
     Active Substance: MAGNESIUM
     Indication: SUPPLEMENTATION THERAPY
     Dosage: UNK, 1X/DAY:QD (AT BEDTIME)
     Route: 065

REACTIONS (22)
  - Heart rate increased [Unknown]
  - Somnolence [Unknown]
  - Eyelid disorder [Unknown]
  - Condition aggravated [Unknown]
  - Head discomfort [Unknown]
  - Glassy eyes [Unknown]
  - Visual impairment [Unknown]
  - Drug effect delayed [Unknown]
  - Bladder spasm [Unknown]
  - Fatigue [Unknown]
  - Thirst [Unknown]
  - Disturbance in attention [Unknown]
  - Drug effect decreased [Unknown]
  - Feeling abnormal [Unknown]
  - Limb discomfort [Unknown]
  - Apathy [Unknown]
  - Irritability [Unknown]
  - Diarrhoea [Unknown]
  - Asthenia [Unknown]
  - Activities of daily living impaired [Unknown]
  - Nausea [Unknown]
  - Logorrhoea [Unknown]

NARRATIVE: CASE EVENT DATE: 201502
